FAERS Safety Report 20024032 (Version 1)
Quarter: 2021Q4

REPORT INFORMATION
  Report Type: Spontaneous
  Country: CA (occurrence: CA)
  Receive Date: 20211102
  Receipt Date: 20211102
  Transmission Date: 20220303
  Serious: Yes (Other)
  Sender: FDA-Public Use
  Company Number: CA-PFIZER INC-2021350916

PATIENT
  Age: 61 Year
  Sex: Male

DRUGS (12)
  1. XELJANZ [Suspect]
     Active Substance: TOFACITINIB CITRATE
     Indication: Rheumatoid arthritis
     Dosage: 5 MG, 2X/DAY
     Route: 048
     Dates: start: 20141107
  2. AMLODIPINE BESYLATE [Concomitant]
     Active Substance: AMLODIPINE BESYLATE
     Indication: Blood pressure abnormal
     Dosage: 10 MG, DAILY
     Route: 048
  3. CELEBREX [Concomitant]
     Active Substance: CELECOXIB
     Dosage: 200 MG, 1X/DAY
     Route: 048
  4. CICLESONIDE [Concomitant]
     Active Substance: CICLESONIDE
     Dosage: 2 SPRAYS EACH NOSTRIL IN THE MORNING
     Route: 055
  5. ADVAIR UNSPEC [Concomitant]
     Dosage: USE 2 INHALATIONS TWICE A DAY
     Route: 055
  6. INDAPAMIDE\PERINDOPRIL [Concomitant]
     Active Substance: INDAPAMIDE\PERINDOPRIL
     Indication: Blood pressure abnormal
     Dosage: 1 DF,  4/1.25 MG 1 TABLET DAILY
     Route: 048
  7. LANSOPRAZOLE [Concomitant]
     Active Substance: LANSOPRAZOLE
     Indication: Dyspepsia
     Dosage: 30 MG AT DINNER TIME
     Route: 065
  8. NITRAZEPAM [Concomitant]
     Active Substance: NITRAZEPAM
     Dosage: 10 MG 1-2 TABLETS AT BEDTIME
     Route: 048
  9. ACETAMINOPHEN\TRAMADOL HYDROCHLORIDE [Concomitant]
     Active Substance: ACETAMINOPHEN\TRAMADOL HYDROCHLORIDE
     Dosage: 37.5/325 MG TID
     Route: 048
  10. VENTOLIN HFA [Concomitant]
     Active Substance: ALBUTEROL SULFATE
     Dosage: 100 UG
     Route: 055
  11. SULFASALAZINE [Concomitant]
     Active Substance: SULFASALAZINE
     Dosage: 1 DF, UNK
     Route: 048
  12. TRAMADOL HYDROCHLORIDE [Concomitant]
     Active Substance: TRAMADOL HYDROCHLORIDE
     Dosage: 200 MG, DAILY
     Route: 048

REACTIONS (2)
  - Tendon rupture [Unknown]
  - Accident [Unknown]

NARRATIVE: CASE EVENT DATE: 20200601
